FAERS Safety Report 10467990 (Version 1)
Quarter: 2014Q3

REPORT INFORMATION
  Report Type: Spontaneous
  Country: US (occurrence: US)
  Receive Date: 20140922
  Receipt Date: 20140922
  Transmission Date: 20150326
  Serious: Yes (Other)
  Sender: FDA-Public Use
  Company Number: US-PFIZER INC-2014259371

PATIENT
  Age: 52 Year
  Sex: Female
  Weight: 58.96 kg

DRUGS (4)
  1. ATORVASTATIN CALCIUM. [Suspect]
     Active Substance: ATORVASTATIN CALCIUM
     Indication: BLOOD CHOLESTEROL INCREASED
     Dosage: 40 MG, 1X/DAY
     Dates: start: 2012
  2. OMEGA XL [Concomitant]
     Indication: PAIN
  3. OMEGA XL [Concomitant]
     Indication: ARTHROPATHY
     Dosage: 600 MG (WHICH SHE MENTIONED 2 CAPSULES OF 300MG AT A TIME), 1X/DAY
  4. ASPIRIN. [Concomitant]
     Active Substance: ASPIRIN
     Dosage: UNK

REACTIONS (2)
  - Foot deformity [Recovered/Resolved]
  - Colon neoplasm [Recovered/Resolved]

NARRATIVE: CASE EVENT DATE: 2012
